FAERS Safety Report 9796016 (Version 3)
Quarter: 2015Q3

REPORT INFORMATION
  Report Type: Spontaneous
  Country: US (occurrence: US)
  Receive Date: 20140103
  Receipt Date: 20150721
  Transmission Date: 20151125
  Serious: No
  Sender: FDA-Public Use
  Company Number: US-GILEAD-2010-0034086

PATIENT
  Age: 37 Year
  Sex: Female

DRUGS (1)
  1. CAYSTON [Suspect]
     Active Substance: AZTREONAM
     Indication: CYSTIC FIBROSIS
     Dates: start: 201006

REACTIONS (3)
  - Mood swings [Unknown]
  - Fatigue [Unknown]
  - Abdominal pain upper [Unknown]
